FAERS Safety Report 8765656 (Version 1)
Quarter: 2012Q4

REPORT INFORMATION
  Report Type: 
  Country: US (occurrence: US)
  Receive Date: 20120904
  Receipt Date: 20120904
  Transmission Date: 20130627
  Serious: Yes (Other)
  Sender: FDA-Public Use
  Company Number: US-JNJFOC-20120814951

PATIENT
  Age: 54 Year
  Sex: Female
  Weight: 40.37 kg

DRUGS (6)
  1. DORIBAX [Suspect]
     Indication: OSTEOMYELITIS
     Route: 042
     Dates: start: 20120801
  2. SENNAGEN [Concomitant]
     Route: 048
  3. OXYBUTYNIN [Concomitant]
     Route: 065
  4. DAPTOMYCIN [Concomitant]
     Route: 065
  5. HYDROCODONE WITH ACETAMINOPHEN [Concomitant]
     Route: 065
  6. LIPITOR [Concomitant]
     Route: 065

REACTIONS (5)
  - Fungal infection [Unknown]
  - Rash generalised [Unknown]
  - Off label use [Unknown]
  - Drug dispensing error [Unknown]
  - Liquid product physical issue [Unknown]
